FAERS Safety Report 7684918-2 (Version None)
Quarter: 2011Q3

REPORT INFORMATION
  Report Type: 
  Country: None (occurrence: None)
  Receive Date: 20110810
  Receipt Date: 20110727
  Transmission Date: 20111222
  Serious: Yes (Other)
  Sender: FDA-Public Use
  Company Number: AMAG201100170

PATIENT
  Age: 75 Year
  Sex: Male

DRUGS (11)
  1. LOPRESSOR [Concomitant]
  2. HYTRIN [Concomitant]
  3. FERAHEME [Suspect]
     Indication: IRON DEFICIENCY ANAEMIA
     Dosage: 510 MG, SINGLE, INTRAVENOUS
     Route: 042
     Dates: start: 20110727, end: 20110727
  4. SYNTHROID [Concomitant]
  5. VYTORIN [Concomitant]
  6. PROCRIT [Concomitant]
  7. GLIPIZIDE [Concomitant]
  8. PLAVIX [Concomitant]
  9. PRILOSEC [Concomitant]
  10. ASPIRIN [Concomitant]
  11. CARDIZEM CD [Concomitant]

REACTIONS (3)
  - DYSPNOEA [None]
  - BRADYCARDIA [None]
  - HYPOTENSION [None]
